FAERS Safety Report 13717118 (Version 2)
Quarter: 2017Q3

REPORT INFORMATION
  Report Type: Report from Study
  Country: US (occurrence: BR)
  Receive Date: 20170705
  Receipt Date: 20170906
  Transmission Date: 20171127
  Serious: Yes (Death, Hospitalization)
  Sender: FDA-Public Use
  Company Number: US-SUNOVION-2017SUN002826

PATIENT
  Sex: Male

DRUGS (1)
  1. INDACATEROL AND GLYCOPYRROLATE [Suspect]
     Active Substance: GLYCOPYRROLATE\INDACATEROL MALEATE
     Indication: PRODUCT USED FOR UNKNOWN INDICATION
     Dosage: UNK 110/50 UG
     Route: 065

REACTIONS (6)
  - Malaise [Unknown]
  - Neoplasm malignant [Fatal]
  - Lower respiratory tract infection bacterial [Fatal]
  - Respiratory arrest [Fatal]
  - Prostate cancer [Fatal]
  - Renal failure [Fatal]
